FAERS Safety Report 4445404-6 (Version None)
Quarter: 2004Q3

REPORT INFORMATION
  Report Type: 
  Country: None (occurrence: None)
  Receive Date: 20040730
  Receipt Date: 20040203
  Transmission Date: 20050211
  Serious: No
  Sender: FDA-Public Use
  Company Number: 139555USA

PATIENT
  Sex: Female

DRUGS (1)
  1. ETOPOSIDE [Suspect]
     Dosage: 39 MILLIGRAM INTRAVENOUS (NOS)
     Route: 042
     Dates: start: 20040123

REACTIONS (3)
  - SWOLLEN TONGUE [None]
  - TACHYCARDIA [None]
  - WHEEZING [None]
